FAERS Safety Report 15812976 (Version 1)
Quarter: 2019Q1

REPORT INFORMATION
  Report Type: Spontaneous
  Country: JP (occurrence: JP)
  Receive Date: 20190111
  Receipt Date: 20190111
  Transmission Date: 20190417
  Serious: Yes (Other)
  Sender: FDA-Public Use
  Company Number: JP-GLAXOSMITHKLINE-JP2019JPN002441

PATIENT
  Age: 47 Year

DRUGS (9)
  1. LEVOTOMIN [Concomitant]
     Active Substance: LEVOMEPROMAZINE
     Dosage: UNK
  2. AMITIZA [Concomitant]
     Active Substance: LUBIPROSTONE
     Dosage: UNK
  3. MIYA-BM [Concomitant]
     Active Substance: CLOSTRIDIUM BUTYRICUM SPORES STRAIN M-55
     Dosage: UNK
  4. VIVIANT [Concomitant]
     Active Substance: BAZEDOXIFENE
     Dosage: UNK
     Route: 048
  5. LAMICTAL [Suspect]
     Active Substance: LAMOTRIGINE
     Dosage: 100 MG, BID
     Route: 048
  6. CHINESE MEDICINE [Concomitant]
     Active Substance: UNSPECIFIED INGREDIENT
     Dosage: UNK
  7. NEUROTROPIN (JAPAN) [Concomitant]
     Dosage: UNK
  8. HANGEKOBOKUTO [Concomitant]
     Active Substance: HERBALS
     Dosage: UNK
  9. SEDIEL [Concomitant]
     Active Substance: TANDOSPIRONE
     Dosage: UNK

REACTIONS (1)
  - Renal impairment [Unknown]
